FAERS Safety Report 12450538 (Version 3)
Quarter: 2016Q2

REPORT INFORMATION
  Report Type: Spontaneous
  Country: IT (occurrence: IT)
  Receive Date: 20160609
  Receipt Date: 20160615
  Transmission Date: 20160815
  Serious: Yes (Hospitalization, Other)
  Sender: FDA-Public Use
  Company Number: IT-SUN PHARMACEUTICAL INDUSTRIES LTD-2016RR-118123

PATIENT
  Age: 28 Year
  Sex: Female

DRUGS (5)
  1. SALINE [Concomitant]
     Active Substance: SODIUM CHLORIDE
     Indication: PRODUCT USED FOR UNKNOWN INDICATION
     Route: 065
  2. CODEINE [Suspect]
     Active Substance: CODEINE
     Indication: ANALGESIC THERAPY
     Dosage: ONE SACHET AS REQUIRED, WITH A MAXIMUM OF THREE SACHETS DAILY
     Route: 065
  3. PARACETAMOL [Suspect]
     Active Substance: ACETAMINOPHEN
     Indication: ANALGESIC THERAPY
     Dosage: ONE SACHET AS REQUIRED, WITH A MAXIMUM OF THREE SACHETS DAILY
     Route: 065
  4. EPINEPHRINE. [Concomitant]
     Active Substance: EPINEPHRINE
     Indication: ANAESTHESIA
     Dosage: 1:200,000
     Route: 065
  5. MEPIVACAINE 2% [Concomitant]
     Indication: ANAESTHESIA
     Route: 065

REACTIONS (1)
  - Pancreatitis acute [Recovered/Resolved]
